FAERS Safety Report 7059509-7 (Version None)
Quarter: 2010Q4

REPORT INFORMATION
  Report Type: 
  Country: None (occurrence: None)
  Receive Date: 20101025
  Receipt Date: 20101011
  Transmission Date: 20110411
  Serious: Yes (Disabling)
  Sender: FDA-Public Use
  Company Number: DE-RANBAXY-2010RR-38862

PATIENT
  Sex: Female
  Weight: 79 kg

DRUGS (2)
  1. CIPROFLOXACIN [Suspect]
     Indication: DIARRHOEA
     Dosage: 250 MG, BID
     Route: 048
     Dates: start: 20100601
  2. OFLOXACIN-RATIOPHARM [Suspect]
     Indication: ECZEMA
     Dosage: 200 MG, BID
     Route: 048
     Dates: start: 20100101

REACTIONS (10)
  - ARTHRALGIA [None]
  - BALANCE DISORDER [None]
  - DIZZINESS [None]
  - HEARING IMPAIRED [None]
  - INSOMNIA [None]
  - MUSCULAR WEAKNESS [None]
  - MYALGIA [None]
  - TENDON PAIN [None]
  - TINNITUS [None]
  - VISUAL IMPAIRMENT [None]
